FAERS Safety Report 7423728-8 (Version None)
Quarter: 2011Q2

REPORT INFORMATION
  Report Type: 
  Country: None (occurrence: None)
  Receive Date: 20110419
  Receipt Date: 20110418
  Transmission Date: 20111010
  Serious: Yes (Other)
  Sender: FDA-Public Use
  Company Number: US-PFIZER INC-2011084914

PATIENT
  Sex: Female
  Weight: 77.098 kg

DRUGS (1)
  1. ADVIL CONGESTION RELIEF [Suspect]
     Dosage: UNK

REACTIONS (3)
  - TREMOR [None]
  - HEART RATE INCREASED [None]
  - DIZZINESS [None]
